FAERS Safety Report 7631689-1 (Version None)
Quarter: 2011Q3

REPORT INFORMATION
  Report Type: 
  Country: None (occurrence: None)
  Receive Date: 20110725
  Receipt Date: 20110218
  Transmission Date: 20111222
  Serious: Yes (Other)
  Sender: FDA-Public Use
  Company Number: US-BRISTOL-MYERS SQUIBB COMPANY-15557945

PATIENT
  Age: 91 Year
  Sex: Female

DRUGS (5)
  1. LASIX [Concomitant]
  2. ASPIRIN [Concomitant]
  3. COUMADIN [Suspect]
     Dosage: DOSE REDUCED TO 2.5 MG FOR 2 DAYS,1MG FOR 2  DAYS PREV RECEIVED FOR 1 YR AND RESTAR ON JAN11
  4. METOPROLOL TARTRATE [Concomitant]
  5. RAZADYNE [Concomitant]

REACTIONS (1)
  - INTERNATIONAL NORMALISED RATIO FLUCTUATION [None]
